FAERS Safety Report 9526242 (Version 2)
Quarter: 2013Q4

REPORT INFORMATION
  Report Type: Spontaneous
  Country: US (occurrence: US)
  Receive Date: 20130916
  Receipt Date: 20131023
  Transmission Date: 20140711
  Serious: Yes (Other)
  Sender: FDA-Public Use
  Company Number: US-TEVA-432067USA

PATIENT
  Age: 25 Year
  Sex: Female
  Weight: 53.57 kg

DRUGS (2)
  1. PARAGARD 380A [Suspect]
     Indication: CONTRACEPTION
     Route: 015
     Dates: start: 20130123, end: 2013
  2. PARAGARD 380A [Suspect]
     Route: 015
     Dates: start: 2013

REACTIONS (5)
  - Device dislocation [Recovered/Resolved]
  - Haemorrhage [Recovered/Resolved]
  - Pelvic pain [Unknown]
  - Pain [Recovered/Resolved]
  - Muscle spasms [Recovered/Resolved]
